FAERS Safety Report 20575569 (Version 1)
Quarter: 2022Q1

REPORT INFORMATION
  Report Type: Spontaneous
  Country: US (occurrence: US)
  Receive Date: 20220310
  Receipt Date: 20220310
  Transmission Date: 20220423
  Serious: Yes (Hospitalization, Other)
  Sender: FDA-Public Use
  Company Number: US-drreddys-SPO/USA/22/0147488

PATIENT
  Age: 64 Year
  Sex: Female

DRUGS (2)
  1. HEPARIN SODIUM [Suspect]
     Active Substance: HEPARIN SODIUM
     Indication: Product used for unknown indication
     Dosage: HEPARIN USE DURING CABG
  2. HEPARIN SODIUM [Suspect]
     Active Substance: HEPARIN SODIUM
     Dosage: HIGH-DOSE

REACTIONS (9)
  - Ventricular hypokinesia [Unknown]
  - Intracardiac thrombus [Unknown]
  - Cerebral artery embolism [Unknown]
  - Cerebral infarction [Unknown]
  - Left ventricular dysfunction [Unknown]
  - Pulmonary infarction [Unknown]
  - Heparin-induced thrombocytopenia [Recovered/Resolved]
  - Pulmonary embolism [Unknown]
  - Embolism venous [Unknown]
